FAERS Safety Report 25464174 (Version 1)
Quarter: 2025Q2

REPORT INFORMATION
  Report Type: Report from Study
  Country: ES (occurrence: ES)
  Receive Date: 20250621
  Receipt Date: 20250621
  Transmission Date: 20250716
  Serious: Yes (Other)
  Sender: AUROBINDO
  Company Number: ES-ETHYPHARM-2025001417

PATIENT
  Age: 22 Month
  Weight: 12 kg

DRUGS (6)
  1. VALPROATE SODIUM [Suspect]
     Active Substance: VALPROATE SODIUM
     Indication: Severe myoclonic epilepsy of infancy
     Dosage: 45 MILLIGRAM/KILOGRAM, ONCE A DAY
     Route: 065
  2. DIAZEPAM [Suspect]
     Active Substance: DIAZEPAM
     Indication: Severe myoclonic epilepsy of infancy
     Route: 065
  3. CLOBAZAM [Suspect]
     Active Substance: CLOBAZAM
     Indication: Severe myoclonic epilepsy of infancy
     Dosage: 0.8 MILLIGRAM/KILOGRAM, ONCE A DAY
     Route: 065
  4. STIRIPENTOL [Suspect]
     Active Substance: STIRIPENTOL
     Indication: Severe myoclonic epilepsy of infancy
     Dosage: 75 MILLIGRAM/KILOGRAM, ONCE A DAY
     Route: 048
  5. STIRIPENTOL [Suspect]
     Active Substance: STIRIPENTOL
     Route: 048
  6. PERAMPANEL [Suspect]
     Active Substance: PERAMPANEL
     Indication: Severe myoclonic epilepsy of infancy
     Route: 065

REACTIONS (2)
  - Cognitive disorder [Recovered/Resolved]
  - Decreased appetite [Recovered/Resolved]
